FAERS Safety Report 8920149 (Version 22)
Quarter: 2015Q3

REPORT INFORMATION
  Report Type: Report from Study
  Country: CA (occurrence: CA)
  Receive Date: 20121122
  Receipt Date: 20150828
  Transmission Date: 20151125
  Serious: Yes (Hospitalization, Other)
  Sender: FDA-Public Use
  Company Number: CA-ROCHE-1131664

PATIENT
  Age: 63 Year
  Sex: Female
  Weight: 63 kg

DRUGS (12)
  1. PANTOLOC [Concomitant]
     Active Substance: PANTOPRAZOLE SODIUM
  2. FOLIC ACID. [Concomitant]
     Active Substance: FOLIC ACID
  3. CLONAZEPAM. [Concomitant]
     Active Substance: CLONAZEPAM
  4. METHOTREXATE (METHOTREXATE SODIUM) [Concomitant]
     Active Substance: METHOTREXATE SODIUM
  5. DILANTIN [Concomitant]
     Active Substance: PHENYTOIN
  6. CELEBREX [Concomitant]
     Active Substance: CELECOXIB
  7. ACTEMRA [Suspect]
     Active Substance: TOCILIZUMAB
     Route: 042
     Dates: start: 20131024
  8. DIOVAN [Concomitant]
     Active Substance: VALSARTAN
  9. ACTEMRA [Suspect]
     Active Substance: TOCILIZUMAB
     Indication: RHEUMATOID ARTHRITIS
     Route: 042
     Dates: start: 20120614
  10. RITUXAN [Suspect]
     Active Substance: RITUXIMAB
     Indication: PRODUCT USED FOR UNKNOWN INDICATION
     Route: 065
  11. ACTEMRA [Suspect]
     Active Substance: TOCILIZUMAB
     Route: 042
     Dates: start: 20130418
  12. PAXIL (CANADA) [Concomitant]

REACTIONS (24)
  - Paraesthesia mucosal [Not Recovered/Not Resolved]
  - Contusion [Recovering/Resolving]
  - Pain [Unknown]
  - Oxygen saturation decreased [Unknown]
  - Erythema [Recovering/Resolving]
  - Upper limb fracture [Unknown]
  - Fall [Unknown]
  - Pulmonary thrombosis [Unknown]
  - Headache [Recovering/Resolving]
  - Malaise [Unknown]
  - Arthralgia [Recovering/Resolving]
  - Joint swelling [Recovering/Resolving]
  - Drug ineffective [Unknown]
  - Infusion related reaction [Recovering/Resolving]
  - Feeling hot [Not Recovered/Not Resolved]
  - Pain [Not Recovered/Not Resolved]
  - Weight increased [Not Recovered/Not Resolved]
  - Cough [Unknown]
  - Urinary bladder polyp [Unknown]
  - Blood pressure increased [Unknown]
  - Internal haemorrhage [Unknown]
  - Tinnitus [Recovered/Resolved]
  - Oropharyngeal pain [Not Recovered/Not Resolved]
  - Weight increased [Unknown]

NARRATIVE: CASE EVENT DATE: 20120614
